FAERS Safety Report 5740757-0 (Version None)
Quarter: 2008Q2

REPORT INFORMATION
  Report Type: 
  Country: None (occurrence: None)
  Receive Date: 20080516
  Receipt Date: 20080506
  Transmission Date: 20081010
  Serious: Yes (Other)
  Sender: FDA-Public Use
  Company Number: FR-PFIZER INC-2007058544

PATIENT
  Sex: Female
  Weight: 108 kg

DRUGS (2)
  1. XALATAN [Suspect]
     Indication: OPEN ANGLE GLAUCOMA
     Dosage: DAILY DOSE:2DROP
     Route: 047
     Dates: start: 20030501, end: 20070612
  2. ALL OTHER THERAPEUTIC PRODUCTS [Concomitant]

REACTIONS (3)
  - ASTHMA [None]
  - HEADACHE [None]
  - SCLERITIS [None]
